FAERS Safety Report 7526592-1 (Version None)
Quarter: 2011Q2

REPORT INFORMATION
  Report Type: 
  Country: None (occurrence: None)
  Receive Date: 20110606
  Receipt Date: 20110519
  Transmission Date: 20111010
  Serious: Yes (Other)
  Sender: FDA-Public Use
  Company Number: GR-ASTRAZENECA-2011SE32009

PATIENT
  Age: 88 Year
  Sex: Female
  Weight: 60 kg

DRUGS (4)
  1. SEROQUEL [Suspect]
     Indication: DEPRESSION
     Route: 048
  2. SEROQUEL [Suspect]
     Indication: DEMENTIA
     Route: 048
  3. REMERON [Concomitant]
     Indication: DEPRESSION
     Route: 048
     Dates: start: 20110301
  4. MEMANTINE HYDROCHLORIDE [Concomitant]
     Indication: DEMENTIA ALZHEIMER'S TYPE
     Route: 048
     Dates: start: 20090101

REACTIONS (1)
  - VENOUS THROMBOSIS [None]
